FAERS Safety Report 4877446-0 (Version None)
Quarter: 2006Q1

REPORT INFORMATION
  Report Type: 
  Country: None (occurrence: None)
  Receive Date: 20060111
  Receipt Date: 20060105
  Transmission Date: 20060701
  Serious: Yes (Hospitalization)
  Sender: FDA-Public Use
  Company Number: 2006CG00041

PATIENT
  Age: 83 Year
  Sex: Male

DRUGS (6)
  1. ZESTORETIC [Suspect]
     Indication: HYPERTENSIVE CARDIOMYOPATHY
     Dosage: 10 + 6.25 MG DAILY
     Route: 048
     Dates: end: 20050629
  2. FUROSEMIDE [Interacting]
     Indication: HYPERTENSIVE CARDIOMYOPATHY
     Dates: end: 20050620
  3. MIFLASONE [Concomitant]
     Route: 048
     Dates: end: 20050629
  4. TRIVASTAL [Concomitant]
     Route: 048
     Dates: end: 20050629
  5. DITROPAN [Concomitant]
     Route: 048
     Dates: end: 20050629
  6. NOOTROPYL [Concomitant]
     Route: 048
     Dates: end: 20050629

REACTIONS (2)
  - DRUG INTERACTION [None]
  - RENAL FAILURE ACUTE [None]
